FAERS Safety Report 21697456 (Version 1)
Quarter: 2022Q4

REPORT INFORMATION
  Report Type: Spontaneous
  Country: PL (occurrence: PL)
  Receive Date: 20221208
  Receipt Date: 20221208
  Transmission Date: 20230113
  Serious: Yes (Other)
  Sender: FDA-Public Use
  Company Number: None

PATIENT
  Age: 78 Year
  Sex: Male
  Weight: 68 kg

DRUGS (3)
  1. LEUCOVORIN CALCIUM [Suspect]
     Active Substance: LEUCOVORIN CALCIUM
     Indication: Colon cancer
     Dosage: UNIT DOSE : 354 MG, DURATION : 2 DAYS
     Route: 065
     Dates: start: 20170627, end: 20170629
  2. IRINOTECAN [Suspect]
     Active Substance: IRINOTECAN
     Indication: Colon cancer
     Dosage: UNIT DOSE : 318.6 MG
     Route: 065
     Dates: start: 20170627, end: 20170627
  3. FLUOROURACIL [Suspect]
     Active Substance: FLUOROURACIL
     Indication: Colon cancer
     Dosage: UNIT DOSE : 8070 MG, DURATION : 2 DAYS
     Route: 065
     Dates: start: 20170627, end: 20170629

REACTIONS (2)
  - Neutropenia [Recovered/Resolved]
  - Asthenia [Recovered/Resolved]

NARRATIVE: CASE EVENT DATE: 20170711
